FAERS Safety Report 14315948 (Version 1)
Quarter: 2017Q4

REPORT INFORMATION
  Report Type: Spontaneous
  Country: US (occurrence: US)
  Receive Date: 20171221
  Receipt Date: 20171221
  Transmission Date: 20180321
  Serious: Yes (Hospitalization, Other)
  Sender: FDA-Public Use
  Company Number: US-BAXTER-2017BAX043199

PATIENT
  Age: 73 Year
  Sex: Female
  Weight: 44.45 kg

DRUGS (8)
  1. TAXOTERE [Suspect]
     Active Substance: DOCETAXEL
     Indication: BREAST CANCER
     Route: 065
  2. IBRANCE [Suspect]
     Active Substance: PALBOCICLIB
     Indication: MALIGNANT NEOPLASM PROGRESSION
     Dosage: FORM OF ADMIN: TABLET, REDUCED DOSE, FOR 21 DAYS AND OFF FOR 1 WEEK
     Route: 048
     Dates: start: 201704
  3. EFFEXOR [Concomitant]
     Active Substance: VENLAFAXINE HYDROCHLORIDE
     Indication: DEPRESSION
     Route: 065
     Dates: start: 2011
  4. XELODA [Suspect]
     Active Substance: CAPECITABINE
     Indication: BREAST CANCER
     Dosage: FOR 2 WEEKS AND 1 WEEK OFF
     Route: 065
     Dates: start: 201603
  5. CYCLOPHOSPHAMIDE FOR INJECTION, USP [Suspect]
     Active Substance: CYCLOPHOSPHAMIDE
     Indication: BREAST CANCER
     Route: 065
  6. EFFEXOR [Concomitant]
     Active Substance: VENLAFAXINE HYDROCHLORIDE
     Dosage: INCREASED
     Route: 065
  7. XELODA [Suspect]
     Active Substance: CAPECITABINE
     Indication: MALIGNANT NEOPLASM PROGRESSION
     Dosage: REDUCED DOSE, FOR 2 WEEKS AND 1 WEEK OFF
     Route: 065
     Dates: end: 201702
  8. IBRANCE [Suspect]
     Active Substance: PALBOCICLIB
     Indication: BREAST CANCER
     Dosage: FORM OF ADMIN: TABLET, STARTING DOSE, FOR 21 DAYS AND ONE WEEK OFF
     Route: 048

REACTIONS (10)
  - Post-traumatic stress disorder [Recovered/Resolved]
  - Alopecia [Unknown]
  - Decreased immune responsiveness [Unknown]
  - Malignant neoplasm progression [Unknown]
  - Stomatitis [Unknown]
  - Fatigue [Unknown]
  - Head injury [Unknown]
  - Fall [Unknown]
  - Adverse drug reaction [Unknown]
  - Skin injury [Unknown]

NARRATIVE: CASE EVENT DATE: 201704
